FAERS Safety Report 25800953 (Version 2)
Quarter: 2025Q4

REPORT INFORMATION
  Report Type: Spontaneous
  Country: JP (occurrence: JP)
  Receive Date: 20250915
  Receipt Date: 20251216
  Transmission Date: 20260118
  Serious: Yes (Death)
  Sender: ROCHE
  Company Number: JP-CHUGAI-2025029313

PATIENT
  Age: 78 Year
  Sex: Female

DRUGS (1)
  1. ENSPRYNG [Suspect]
     Active Substance: SATRALIZUMAB-MWGE
     Indication: Neuromyelitis optica spectrum disorder
     Dosage: UNK
     Route: 058

REACTIONS (1)
  - Small cell carcinoma [Fatal]

NARRATIVE: CASE EVENT DATE: 20250716
